FAERS Safety Report 18209034 (Version 4)
Quarter: 2020Q4

REPORT INFORMATION
  Report Type: Spontaneous
  Country: FR (occurrence: FR)
  Receive Date: 20200828
  Receipt Date: 20201021
  Transmission Date: 20210113
  Serious: Yes (Hospitalization)
  Sender: FDA-Public Use
  Company Number: FR-GLAXOSMITHKLINE-FR2020169809

PATIENT
  Age: 59 Year
  Sex: Female
  Weight: 49 kg

DRUGS (13)
  1. RANITIDINE. [Suspect]
     Active Substance: RANITIDINE
     Dosage: 200 MG, QD
     Route: 048
     Dates: start: 20200605, end: 20200606
  2. RANITIDINE. [Suspect]
     Active Substance: RANITIDINE
     Indication: ORAL FUNGAL INFECTION
     Dosage: 200 MG, QD
     Route: 048
     Dates: start: 20200604, end: 20200606
  3. POLARAMINE [Suspect]
     Active Substance: DEXCHLORPHENIRAMINE MALEATE
     Indication: CHEMOTHERAPY SIDE EFFECT PROPHYLAXIS
     Dosage: 5 MG QD
     Route: 042
     Dates: start: 20200603, end: 20200603
  4. PACLITAXEL. [Suspect]
     Active Substance: PACLITAXEL
     Indication: LUNG ADENOCARCINOMA
     Dosage: 266.5 MG
     Route: 042
     Dates: start: 20200603, end: 20200603
  5. FLUCONAZOLE. [Suspect]
     Active Substance: FLUCONAZOLE
     Indication: ORAL FUNGAL INFECTION
     Dosage: 200 MG, QD
     Route: 048
     Dates: start: 20200604, end: 20200609
  6. PRIMPERAN [Suspect]
     Active Substance: METOCLOPRAMIDE HYDROCHLORIDE
     Indication: PRODUCT USED FOR UNKNOWN INDICATION
     Dosage: 3 DF, QD
     Route: 048
     Dates: start: 20200330
  7. CARBOPLATIN. [Suspect]
     Active Substance: CARBOPLATIN
     Indication: LUNG ADENOCARCINOMA
     Dosage: 580 MG, CYC
     Route: 042
     Dates: start: 20200603, end: 20200603
  8. RANITIDINE. [Suspect]
     Active Substance: RANITIDINE
     Dosage: 200 MG, QD
     Route: 048
     Dates: start: 20200604, end: 20200609
  9. RANITIDINE. [Suspect]
     Active Substance: RANITIDINE
     Indication: CHEMOTHERAPY SIDE EFFECT PROPHYLAXIS
     Dosage: 200 MG, SINGLE
     Route: 042
  10. RANITIDINE. [Suspect]
     Active Substance: RANITIDINE
     Dosage: 200 MG, QD
     Route: 048
     Dates: start: 20200330
  11. RANITIDINE. [Suspect]
     Active Substance: RANITIDINE
     Indication: LUNG ADENOCARCINOMA
     Dosage: 200 MG, SINGLE
     Route: 042
     Dates: start: 20200603, end: 20200603
  12. ZOPHREN [Suspect]
     Active Substance: ONDANSETRON
     Indication: PRODUCT USED FOR UNKNOWN INDICATION
     Dosage: 2 DF, QD
     Route: 048
     Dates: start: 20200604, end: 20200606
  13. EMEND (FOSAPREPITANT DIMEGLUMINE) [Suspect]
     Active Substance: FOSAPREPITANT DIMEGLUMINE
     Dosage: 1 DF, QD
     Route: 048
     Dates: start: 20200605, end: 20200606

REACTIONS (3)
  - Pyrexia [Recovered/Resolved]
  - Rash maculo-papular [Recovered/Resolved]
  - Pruritus [Recovered/Resolved]

NARRATIVE: CASE EVENT DATE: 20200606
